FAERS Safety Report 5109855-9 (Version None)
Quarter: 2006Q3

REPORT INFORMATION
  Report Type: 
  Country: None (occurrence: None)
  Receive Date: 20060918
  Receipt Date: 20060918
  Transmission Date: 20061208
  Serious: Yes (Other)
  Sender: FDA-Public Use
  Company Number: None

PATIENT
  Age: 87 Year
  Sex: Male
  Weight: 86.1834 kg

DRUGS (6)
  1. VEXOL [Suspect]
     Indication: CATARACT OPERATION
     Dosage: 1 DROP    4 TIMES DAILY   LEFT EYE
     Dates: start: 20060601, end: 20060801
  2. NEVANAC [Suspect]
  3. ZYMAR [Suspect]
  4. METOPROLOL [Concomitant]
  5. AMIODARONE HCL [Concomitant]
  6. SYNTHROID [Concomitant]

REACTIONS (1)
  - RASH MACULAR [None]
